FAERS Safety Report 26093853 (Version 1)
Quarter: 2025Q4

REPORT INFORMATION
  Report Type: Spontaneous
  Country: US (occurrence: US)
  Receive Date: 20251126
  Receipt Date: 20251126
  Transmission Date: 20260117
  Serious: No
  Sender: GLENMARK
  Company Number: US-GLENMARK PHARMACEUTICALS-2025GMK101523

PATIENT

DRUGS (1)
  1. OXCARBAZEPINE [Suspect]
     Active Substance: OXCARBAZEPINE
     Indication: Occipital neuralgia
     Dosage: 300 MILLIGRAM, BID
     Route: 048

REACTIONS (2)
  - Hot flush [Unknown]
  - Drug effective for unapproved indication [Unknown]
